FAERS Safety Report 25860016 (Version 1)
Quarter: 2025Q3

REPORT INFORMATION
  Report Type: Spontaneous
  Country: CH (occurrence: CH)
  Receive Date: 20250929
  Receipt Date: 20250929
  Transmission Date: 20251021
  Serious: Yes (Other)
  Sender: PFIZER
  Company Number: None

PATIENT
  Age: 89 Year
  Sex: Female

DRUGS (26)
  1. ALDACTONE [Suspect]
     Active Substance: SPIRONOLACTONE
     Dosage: 25 MG, 1X/DAY
     Dates: end: 20250710
  2. ALDACTONE [Suspect]
     Active Substance: SPIRONOLACTONE
     Dosage: 12.5 MG, 1X/DAY
     Dates: start: 20250711
  3. TORSEMIDE [Suspect]
     Active Substance: TORSEMIDE
     Dosage: 30 MG, 1X/DAY
     Dates: end: 20250710
  4. TORSEMIDE [Suspect]
     Active Substance: TORSEMIDE
     Dosage: 15 MG, 1X/DAY
     Dates: start: 20250711
  5. IRBESARTAN [Suspect]
     Active Substance: IRBESARTAN
     Dosage: 150 MG, 2X/DAY (EVERY 12 HOURS)
  6. OMEPRAZOLE [Suspect]
     Active Substance: OMEPRAZOLE
  7. METOPROLOL [Suspect]
     Active Substance: METOPROLOL
     Dosage: 25 MG, 2X/DAY (EVERY 12 HOURS)
  8. ZOLPIDEM [Suspect]
     Active Substance: ZOLPIDEM TARTRATE
  9. DEPONIT [Concomitant]
     Active Substance: NITROGLYCERIN
     Dosage: 10 MG, 1X/DAY
  10. ASPIRIN [Concomitant]
     Active Substance: ASPIRIN
     Dosage: 100 MG, DAILY
  11. MOLSIDOMINE [Concomitant]
     Active Substance: MOLSIDOMINE
     Dosage: 2 MG, 2X/DAY (EVERY 12 HOURS)
  12. FOLIC ACID [Concomitant]
     Active Substance: FOLIC ACID
     Dosage: 5 MG, 1X/DAY
  13. MOVICOL [Concomitant]
     Active Substance: POLYETHYLENE GLYCOL 3350\POTASSIUM CHLORIDE\SODIUM BICARBONATE\SODIUM CHLORIDE
  14. TOUJEO [Concomitant]
     Active Substance: INSULIN GLARGINE
     Dosage: 2 DF, 1X/DAY
  15. ALLOPURINOL [Concomitant]
     Active Substance: ALLOPURINOL
     Dosage: 100 MG, 1X/DAY
  16. VITARUBIN [CYANOCOBALAMIN] [Concomitant]
     Dosage: 1 DF, 1X/DAY
  17. BUPRENORPHINE HYDROCHLORIDE [Concomitant]
     Active Substance: BUPRENORPHINE HYDROCHLORIDE
  18. NITRODERM [Concomitant]
     Active Substance: NITROGLYCERIN
  19. ISOSORBIDE DINITRATE [Concomitant]
     Active Substance: ISOSORBIDE DINITRATE
  20. PRORHINEL [BENZODODECINIUM BROMIDE;POLYSORBATE 80;SODIUM CHLORIDE] [Concomitant]
  21. NOVORAPID [Concomitant]
     Active Substance: INSULIN ASPART
  22. ROSUVASTATIN CALCIUM [Concomitant]
     Active Substance: ROSUVASTATIN CALCIUM
     Dosage: 20 MG, 1X/DAY
  23. BUDESONIDE\FORMOTEROL FUMARATE DIHYDRATE [Concomitant]
     Active Substance: BUDESONIDE\FORMOTEROL FUMARATE DIHYDRATE
  24. DYMISTA [Concomitant]
     Active Substance: AZELASTINE HYDROCHLORIDE\FLUTICASONE PROPIONATE
  25. MAGALDRATE [Concomitant]
     Active Substance: MAGALDRATE
  26. DUPHALAC [Concomitant]
     Active Substance: LACTULOSE

REACTIONS (2)
  - Inappropriate antidiuretic hormone secretion [Not Recovered/Not Resolved]
  - Hyponatraemia [Not Recovered/Not Resolved]

NARRATIVE: CASE EVENT DATE: 20250702
